FAERS Safety Report 17517580 (Version 1)
Quarter: 2020Q1

REPORT INFORMATION
  Report Type: Spontaneous
  Country: US (occurrence: US)
  Receive Date: 20200309
  Receipt Date: 20200309
  Transmission Date: 20200409
  Serious: Yes (Death)
  Sender: FDA-Public Use
  Company Number: None

PATIENT
  Sex: Female

DRUGS (5)
  1. REQUIP XL, CITALOPRAM, OXYBUTYNIN, FEMARA, PROAIR HFA, ROPINIROLE [Concomitant]
  2. ADVAIR DISKU, MONTELUKAST, METHYLPHENIDATE, ESCITAOPRAM, SOLIFENANCIN, [Concomitant]
  3. CAPECITABINE. [Suspect]
     Active Substance: CAPECITABINE
     Indication: PLASMA CELL MYELOMA
     Route: 048
     Dates: start: 20191231
  4. PIROXICAM, CELECOXIB [Concomitant]
  5. ENOXAPARIN, OXYCODONE, OXYCONTIN, MIRTAZAPINE, DEXILANT, FUROSEMIDE [Concomitant]

REACTIONS (1)
  - Death [None]
